FAERS Safety Report 23377266 (Version 1)
Quarter: 2024Q1

REPORT INFORMATION
  Report Type: Spontaneous
  Country: None (occurrence: CN)
  Receive Date: 20240108
  Receipt Date: 20240108
  Transmission Date: 20240410
  Serious: Yes (Other)
  Sender: FDA-Public Use
  Company Number: CN-Jiangsu Hengrui Medicine Co., Ltd.-2150552

PATIENT
  Sex: Male

DRUGS (5)
  1. OXALIPLATIN [Suspect]
     Active Substance: OXALIPLATIN
     Indication: Gastric cancer
     Dates: start: 20230706, end: 20230706
  2. CAPECITABINE [Concomitant]
     Active Substance: CAPECITABINE
     Dates: start: 20230706
  3. VONOPRAZAN FUMARATE [Concomitant]
     Active Substance: VONOPRAZAN FUMARATE
     Dates: start: 20230703, end: 20230703
  4. ALMAGATE [Concomitant]
     Active Substance: ALMAGATE
     Dates: start: 20230703, end: 20230703
  5. LEUCOGEN [Concomitant]
     Active Substance: LEUCOGEN
     Dates: start: 20230703, end: 20230703

REACTIONS (2)
  - Hyperpyrexia [Recovered/Resolved]
  - Chills [Recovered/Resolved]

NARRATIVE: CASE EVENT DATE: 20230707
